FAERS Safety Report 4748686-6 (Version None)
Quarter: 2005Q3

REPORT INFORMATION
  Report Type: 
  Country: None (occurrence: None)
  Receive Date: 20050819
  Receipt Date: 20050804
  Transmission Date: 20060218
  Serious: Yes (Hospitalization)
  Sender: FDA-Public Use
  Company Number: HQWYE736105AUG05

PATIENT
  Age: 40 Year
  Weight: 60.2 kg

DRUGS (1)
  1. ENBREL [Suspect]
     Indication: PSORIASIS
     Route: 058
     Dates: start: 20050715, end: 20050729

REACTIONS (3)
  - HEPATITIS [None]
  - HEPATOTOXICITY [None]
  - INFECTION [None]
